FAERS Safety Report 8305457-1 (Version None)
Quarter: 2012Q2

REPORT INFORMATION
  Report Type: 
  Country: None (occurrence: None)
  Receive Date: 20120423
  Receipt Date: 20120417
  Transmission Date: 20120825
  Serious: Yes (Hospitalization)
  Sender: FDA-Public Use
  Company Number: US-GLAXOSMITHKLINE-A0903089A

PATIENT
  Age: 49 Year
  Sex: Female
  Weight: 117.3 kg

DRUGS (2)
  1. AVANDIA [Suspect]
     Indication: DIABETES MELLITUS
     Dosage: 8MG PER DAY
     Route: 048
     Dates: start: 20010101, end: 20060101
  2. GLUCOVANCE [Concomitant]
     Indication: PRODUCT USED FOR UNKNOWN INDICATION
     Route: 065

REACTIONS (3)
  - CARDIAC FAILURE CONGESTIVE [None]
  - CARDIOVASCULAR DISORDER [None]
  - MYOCARDIAL INFARCTION [None]
